FAERS Safety Report 9820384 (Version 1)
Quarter: 2013Q4

REPORT INFORMATION
  Report Type: Spontaneous
  Country: US (occurrence: None)
  Receive Date: 20131028
  Receipt Date: 20131028
  Transmission Date: 20140711
  Serious: Yes (Other)
  Sender: FDA-Public Use
  Company Number: SYM-2013-02084

PATIENT
  Age: 27 Year
  Sex: Female

DRUGS (1)
  1. WELLBUTRIN (BUPROPION HYDROCHLORIDE) (TABLETS) (BUPROPION HYDROCHLORIDE) [Suspect]
     Indication: PRODUCT USED FOR UNKNOWN INDICATION
     Route: 048
     Dates: start: 1998, end: 1998

REACTIONS (5)
  - Deafness [None]
  - Tinnitus [None]
  - Skin ulcer [None]
  - Weight increased [None]
  - Overweight [None]
